FAERS Safety Report 9672525 (Version 2)
Quarter: 2014Q1

REPORT INFORMATION
  Report Type: Spontaneous
  Country: US (occurrence: US)
  Receive Date: 20131106
  Receipt Date: 20140123
  Transmission Date: 20141002
  Serious: Yes (Other)
  Sender: FDA-Public Use
  Company Number: US-009507513-1310USA014715

PATIENT
  Sex: Female

DRUGS (2)
  1. MEVACOR TABLET [Suspect]
     Indication: BLOOD CHOLESTEROL INCREASED
     Dosage: UNK
     Route: 048
     Dates: start: 1990
  2. CARDIZEM [Concomitant]
     Dosage: 300 MG, QD

REACTIONS (5)
  - Respiratory failure [Recovering/Resolving]
  - Neck injury [Recovering/Resolving]
  - Pain [Recovering/Resolving]
  - Drug intolerance [Recovering/Resolving]
  - Fatigue [Recovering/Resolving]
